FAERS Safety Report 24084990 (Version 1)
Quarter: 2024Q3

REPORT INFORMATION
  Report Type: Spontaneous
  Country: AE (occurrence: AE)
  Receive Date: 20240712
  Receipt Date: 20240712
  Transmission Date: 20241016
  Serious: Yes (Hospitalization, Other)
  Sender: AMARIN
  Company Number: AE-Amarin Pharma  Inc-2024AMR000340

PATIENT
  Sex: Male

DRUGS (1)
  1. VASCEPA [Suspect]
     Active Substance: ICOSAPENT ETHYL
     Indication: Cardiovascular event prophylaxis
     Dosage: 4G PER DAY

REACTIONS (2)
  - Atrial fibrillation [Recovered/Resolved]
  - Cardioversion [Recovered/Resolved]
